FAERS Safety Report 19489249 (Version 1)
Quarter: 2021Q3

REPORT INFORMATION
  Report Type: Spontaneous
  Country: US (occurrence: US)
  Receive Date: 20210703
  Receipt Date: 20210703
  Transmission Date: 20211014
  Serious: No
  Sender: FDA-Public Use
  Company Number: US-EMD SERONO-7172822

PATIENT
  Sex: Female
  Weight: 48 kg

DRUGS (3)
  1. REBIF [Suspect]
     Active Substance: INTERFERON BETA-1A
     Route: 058
     Dates: start: 20121017, end: 20150926
  2. REBIF [Suspect]
     Active Substance: INTERFERON BETA-1A
     Route: 058
     Dates: start: 20190517
  3. REBIF [Suspect]
     Active Substance: INTERFERON BETA-1A
     Indication: MULTIPLE SCLEROSIS
     Route: 058
     Dates: start: 20060912, end: 20111014

REACTIONS (2)
  - Back pain [Not Recovered/Not Resolved]
  - Multiple sclerosis relapse [Recovered/Resolved]
